FAERS Safety Report 6252972-0 (Version None)
Quarter: 2009Q3

REPORT INFORMATION
  Report Type: 
  Country: None (occurrence: None)
  Receive Date: 20090701
  Receipt Date: 20090623
  Transmission Date: 20100115
  Serious: Yes (Other)
  Sender: FDA-Public Use
  Company Number: B0581301A

PATIENT
  Sex: Female

DRUGS (5)
  1. AUGMENTIN '125' [Suspect]
     Indication: DRUG USE FOR UNKNOWN INDICATION
     Route: 065
  2. INTERFERON [Concomitant]
  3. VENTOLIN [Concomitant]
  4. BACLOFEN [Concomitant]
  5. UNKNOWN DRUG [Concomitant]

REACTIONS (2)
  - AMNESIA [None]
  - SYNCOPE [None]
